FAERS Safety Report 10177079 (Version 1)
Quarter: 2014Q2

REPORT INFORMATION
  Report Type: Spontaneous
  Country: GB (occurrence: US)
  Receive Date: 20140516
  Receipt Date: 20140516
  Transmission Date: 20141212
  Serious: No
  Sender: FDA-Public Use
  Company Number: GB-009507513-1405USA005051

PATIENT
  Age: 43 Year
  Sex: Male

DRUGS (2)
  1. AFRIN [Suspect]
     Indication: RHINITIS
     Dosage: UNK, UNKNOWN
     Route: 045
  2. ATENOLOL [Concomitant]
     Indication: VENTRICULAR TACHYCARDIA
     Dosage: 50 MG, UNKNOWN

REACTIONS (2)
  - Ventricular tachycardia [Recovered/Resolved]
  - Cardiac fibroma [Recovered/Resolved with Sequelae]
